FAERS Safety Report 7128011-6 (Version None)
Quarter: 2010Q4

REPORT INFORMATION
  Report Type: 
  Country: None (occurrence: None)
  Receive Date: 20101112
  Receipt Date: 20101103
  Transmission Date: 20110411
  Serious: Yes (Hospitalization)
  Sender: FDA-Public Use
  Company Number: 2010SP004586

PATIENT
  Age: 38 Year
  Sex: Female
  Weight: 63.5036 kg

DRUGS (6)
  1. NUVARING [Suspect]
     Indication: CONTRACEPTION
     Dates: start: 20051001, end: 20060901
  2. NUVARING [Suspect]
     Indication: ENDOMETRIOSIS
     Dates: start: 20051001, end: 20060901
  3. NUVARING [Suspect]
     Indication: CONTRACEPTION
     Dates: start: 20080501, end: 20080801
  4. NUVARING [Suspect]
     Indication: ENDOMETRIOSIS
     Dates: start: 20080501, end: 20080801
  5. IMITREX [Concomitant]
  6. MOTRIN [Concomitant]

REACTIONS (15)
  - BACK PAIN [None]
  - BUNION [None]
  - DEEP VEIN THROMBOSIS [None]
  - DIARRHOEA [None]
  - DYSMENORRHOEA [None]
  - ENDOMETRIOSIS [None]
  - FOOT DEFORMITY [None]
  - MENORRHAGIA [None]
  - MIGRAINE [None]
  - NO THERAPEUTIC RESPONSE [None]
  - PAIN IN EXTREMITY [None]
  - PELVIC ADHESIONS [None]
  - PELVIC PAIN [None]
  - POLYCYSTIC OVARIES [None]
  - PULMONARY EMBOLISM [None]
